FAERS Safety Report 4553548-3 (Version None)
Quarter: 2005Q1

REPORT INFORMATION
  Report Type: 
  Country: None (occurrence: None)
  Receive Date: 20050112
  Receipt Date: 20041230
  Transmission Date: 20050727
  Serious: Yes (Death)
  Sender: FDA-Public Use
  Company Number: 2004BI002417

PATIENT
  Sex: 0

DRUGS (6)
  1. ZEVALIN [Suspect]
     Indication: NON-HODGKIN'S LYMPHOMA
     Dosage: 1X; IV
     Route: 042
  2. ZEVALIN [Suspect]
     Indication: NON-HODGKIN'S LYMPHOMA
     Dosage: 1X; IV
     Route: 042
  3. ZEVALIN [Suspect]
     Indication: NON-HODGKIN'S LYMPHOMA
     Dosage: 1X; IV
     Route: 042
  4. ZEVALIN [Suspect]
     Indication: NON-HODGKIN'S LYMPHOMA
     Dosage: 1X; IV
     Route: 042
  5. ZEVALIN [Suspect]
  6. ZEVALIN [Suspect]

REACTIONS (1)
  - DEATH [None]
